FAERS Safety Report 16416110 (Version 1)
Quarter: 2019Q2

REPORT INFORMATION
  Report Type: Spontaneous
  Country: US (occurrence: US)
  Receive Date: 20190611
  Receipt Date: 20190611
  Transmission Date: 20190711
  Serious: Yes (Other)
  Sender: FDA-Public Use
  Company Number: US-RISING PHARMACEUTICALS, INC.-2019RIS00007

PATIENT
  Sex: Female

DRUGS (2)
  1. CEVIMELINE HYDROCHLORIDE. [Suspect]
     Active Substance: CEVIMELINE HYDROCHLORIDE
     Dosage: 30 MG 2-3 TIMES DAILY
     Route: 048
     Dates: start: 201811
  2. UNSPECIFIED CHOLESTEROL MEDICATIONS [Concomitant]

REACTIONS (16)
  - Oral fungal infection [Not Recovered/Not Resolved]
  - Blood cholesterol increased [Not Recovered/Not Resolved]
  - Lipids increased [Not Recovered/Not Resolved]
  - Dry skin [Not Recovered/Not Resolved]
  - C-reactive protein increased [Not Recovered/Not Resolved]
  - Rash [Not Recovered/Not Resolved]
  - Pain [Not Recovered/Not Resolved]
  - Blood triglycerides increased [Not Recovered/Not Resolved]
  - Skin infection [Not Recovered/Not Resolved]
  - Cough [Not Recovered/Not Resolved]
  - Albumin urine [Not Recovered/Not Resolved]
  - Mumps [Not Recovered/Not Resolved]
  - Vulvovaginal mycotic infection [Not Recovered/Not Resolved]
  - Dermatitis [Not Recovered/Not Resolved]
  - Acne [Not Recovered/Not Resolved]
  - Noninfective sialoadenitis [Not Recovered/Not Resolved]

NARRATIVE: CASE EVENT DATE: 2018
